FAERS Safety Report 21070502 (Version 1)
Quarter: 2022Q3

REPORT INFORMATION
  Report Type: Spontaneous
  Country: AT (occurrence: AT)
  Receive Date: 20220712
  Receipt Date: 20220712
  Transmission Date: 20221026
  Serious: Yes (Other)
  Sender: FDA-Public Use
  Company Number: AT-UCBSA-2022035950

PATIENT
  Age: 3 Year
  Sex: Female

DRUGS (3)
  1. LEVETIRACETAM [Suspect]
     Active Substance: LEVETIRACETAM
     Indication: Seizure
     Dosage: 65 MILLIGRAM/KILOGRAM, QD (65 MILLIGRAM/KILOGRAM PER DAY)
     Route: 065
  2. VIMPAT [Suspect]
     Active Substance: LACOSAMIDE
     Indication: Seizure
     Dosage: 5 MILLIGRAM/KILOGRAM, QD (5 MILLIGRAM/KILOGRAM PER DAY)
     Route: 065
  3. MIDAZOLAM [Concomitant]
     Active Substance: MIDAZOLAM
     Indication: Seizure
     Dosage: 0.16 MILLIGRAM/KILOGRAM, QH (0.16 MILLIGRAM/KILOGRAM PER HOUR)
     Route: 065

REACTIONS (2)
  - Seizure cluster [Unknown]
  - Agitation [Recovering/Resolving]
